FAERS Safety Report 14846764 (Version 3)
Quarter: 2020Q2

REPORT INFORMATION
  Report Type: Spontaneous
  Country: FR (occurrence: FR)
  Receive Date: 20180504
  Receipt Date: 20200416
  Transmission Date: 20200713
  Serious: Yes (Hospitalization, Other)
  Sender: FDA-Public Use
  Company Number: FR-009507513-1804FRA013084

PATIENT
  Age: 55 Year
  Sex: Female
  Weight: 42 kg

DRUGS (9)
  1. ACETAMINOPHEN. [Concomitant]
     Active Substance: ACETAMINOPHEN
     Indication: PAIN
     Dosage: UNKNOWN
     Route: 048
     Dates: start: 20180324
  2. ALPRAZOLAM. [Concomitant]
     Active Substance: ALPRAZOLAM
     Dosage: 1.25 MILLIGRAM, QD
     Route: 048
     Dates: end: 20180321
  3. MIRTAZAPINE. [Suspect]
     Active Substance: MIRTAZAPINE
     Indication: DEPRESSION
     Dosage: 30 MG, QD
     Route: 048
     Dates: end: 20180402
  4. TRANXENE [Concomitant]
     Active Substance: CLORAZEPATE DIPOTASSIUM
     Dosage: UNKNOWN
     Route: 048
     Dates: start: 20180323, end: 20180403
  5. PAROXETINE. [Suspect]
     Active Substance: PAROXETINE
     Indication: DEPRESSION
     Dosage: 40 MG, QD
     Route: 048
     Dates: end: 20180321
  6. NICOPASS [Suspect]
     Active Substance: NICOTINE
     Indication: EX-TOBACCO USER
     Dosage: 1 DOSAGE FORM
     Route: 048
     Dates: start: 20180323
  7. THERALENE [Concomitant]
     Active Substance: TRIMEPRAZINE
     Dosage: 10 GTT, QD  (DROP (1/12 MILLILITER))
     Route: 048
     Dates: start: 20180324, end: 20180409
  8. LORMETAZEPAM [Concomitant]
     Active Substance: LORMETAZEPAM
     Indication: DEPRESSION
     Dosage: UNKNOWN
     Route: 048
     Dates: end: 20180321
  9. ALPRAZOLAM. [Concomitant]
     Active Substance: ALPRAZOLAM
     Indication: DEPRESSION
     Dosage: 1.25 MG, QD
     Route: 048
     Dates: end: 20180321

REACTIONS (1)
  - Reversible cerebral vasoconstriction syndrome [Recovered/Resolved]

NARRATIVE: CASE EVENT DATE: 20180326
